FAERS Safety Report 23531483 (Version 1)
Quarter: 2024Q1

REPORT INFORMATION
  Report Type: Spontaneous
  Country: US (occurrence: US)
  Receive Date: 20240216
  Receipt Date: 20240216
  Transmission Date: 20240409
  Serious: Yes (Other)
  Sender: FDA-Public Use
  Company Number: US-AMGEN-USASP2024029293

PATIENT

DRUGS (2)
  1. BEVACIZUMAB [Suspect]
     Active Substance: BEVACIZUMAB
     Indication: Tractional retinal detachment
     Dosage: 1.25 MILLIGRAM
  2. BEVACIZUMAB [Suspect]
     Active Substance: BEVACIZUMAB
     Indication: Diabetic retinopathy

REACTIONS (7)
  - Tractional retinal detachment [Unknown]
  - Retinal detachment [Unknown]
  - Vitreous haemorrhage [Unknown]
  - Glaucoma [Unknown]
  - Diabetic retinopathy [Unknown]
  - Cataract [Unknown]
  - Off label use [Unknown]
